FAERS Safety Report 18041977 (Version 1)
Quarter: 2020Q3

REPORT INFORMATION
  Report Type: Spontaneous
  Country: US (occurrence: US)
  Receive Date: 20200720
  Receipt Date: 20200720
  Transmission Date: 20201103
  Serious: Yes (Other)
  Sender: FDA-Public Use
  Company Number: US-TORRENT-00010303

PATIENT
  Age: 81 Year
  Sex: Male

DRUGS (2)
  1. ZOLPIDEM [Suspect]
     Active Substance: ZOLPIDEM TARTRATE
     Indication: SLEEP DISORDER
     Dosage: EVERY NIGHT
  2. HYDROMORPHONE [Interacting]
     Active Substance: HYDROMORPHONE
     Indication: PAIN MANAGEMENT
     Dosage: LOW DOSES, AS NECESSARY
     Route: 042

REACTIONS (3)
  - Depressed level of consciousness [Unknown]
  - Respiratory depression [Unknown]
  - Drug interaction [Unknown]
